FAERS Safety Report 13955879 (Version 1)
Quarter: 2017Q3

REPORT INFORMATION
  Report Type: Spontaneous
  Country: US (occurrence: US)
  Receive Date: 20170911
  Receipt Date: 20170911
  Transmission Date: 20171128
  Serious: No
  Sender: FDA-Public Use
  Company Number: US-SUNOVION-2017SUN003858

PATIENT
  Age: 48 Year
  Sex: Female
  Weight: 83.9 kg

DRUGS (4)
  1. LATUDA [Suspect]
     Active Substance: LURASIDONE HYDROCHLORIDE
     Indication: AFFECTIVE DISORDER
     Dosage: 20 MG, AT DINNER, 20 MG HS
     Route: 048
     Dates: start: 201708
  2. VYVANSE [Concomitant]
     Dosage: 30 MG, QD
     Route: 048
  3. LATUDA [Suspect]
     Active Substance: LURASIDONE HYDROCHLORIDE
     Dosage: 40 MG, HS
     Route: 048
     Dates: start: 201706
  4. PROZAC [Concomitant]
     Dosage: 60 MG, QD
     Route: 048

REACTIONS (4)
  - Sluggishness [Not Recovered/Not Resolved]
  - Fatigue [Not Recovered/Not Resolved]
  - Somnolence [Not Recovered/Not Resolved]
  - Product use in unapproved indication [Unknown]

NARRATIVE: CASE EVENT DATE: 201706
